FAERS Safety Report 5052113-1 (Version None)
Quarter: 2006Q3

REPORT INFORMATION
  Report Type: 
  Country: None (occurrence: None)
  Receive Date: 20060711
  Receipt Date: 20060616
  Transmission Date: 20061208
  Serious: Yes (Death, Hospitalization)
  Sender: FDA-Public Use
  Company Number: FR200605003816

PATIENT
  Age: 81 Year
  Sex: Female

DRUGS (10)
  1. CEFACLOR [Suspect]
     Indication: BRONCHITIS
     Dosage: 500 MG, 2/D ORAL
     Route: 048
     Dates: start: 20060123, end: 20060127
  2. ENGERIX-B [Concomitant]
  3. NEORECORMON (EPOETIN BETA) [Concomitant]
  4. AMLODIPINE BESYLATE [Concomitant]
  5. CALCIDIA (CALCIUM CARBONATE) [Concomitant]
  6. LASIX [Concomitant]
  7. BISOPROLOL FUMARATE [Concomitant]
  8. ASPEGIC 1000 [Concomitant]
  9. EUPRESSYL (URAPIDIL) [Concomitant]
  10. EXACYL (TRANEXAMIC ACID) [Concomitant]

REACTIONS (7)
  - CARDIAC ARREST [None]
  - FALL [None]
  - HAEMATOMA [None]
  - HAEMOLYTIC ANAEMIA [None]
  - HAPTOGLOBIN DECREASED [None]
  - HEAD INJURY [None]
  - THROMBOCYTOPENIA [None]
